FAERS Safety Report 12300091 (Version 1)
Quarter: 2016Q2

REPORT INFORMATION
  Report Type: Spontaneous
  Country: MX (occurrence: MX)
  Receive Date: 20160425
  Receipt Date: 20160425
  Transmission Date: 20160815
  Serious: Yes (Life-Threatening, Disabling)
  Sender: FDA-Public Use
  Company Number: MX-009507513-1603MEX007192

PATIENT
  Age: 50 Year
  Sex: Male
  Weight: 78.4 kg

DRUGS (2)
  1. COTRONAK [Suspect]
     Active Substance: RIBAVIRIN
     Indication: HEPATITIS C
     Dosage: UNK
     Route: 048
     Dates: start: 20160205, end: 20160304
  2. PEGTRON [Suspect]
     Active Substance: PEGINTERFERON ALFA-2B
     Indication: HEPATITIS C
     Dosage: UNK
     Route: 058
     Dates: start: 20160205, end: 20160304

REACTIONS (5)
  - Thrombocytopenia [Recovered/Resolved]
  - Headache [Recovered/Resolved]
  - Impaired work ability [Unknown]
  - Bone pain [Recovered/Resolved]
  - Hyperthermia [Recovered/Resolved]

NARRATIVE: CASE EVENT DATE: 201602
